FAERS Safety Report 5095466-0 (Version None)
Quarter: 2006Q3

REPORT INFORMATION
  Report Type: 
  Country: None (occurrence: None)
  Receive Date: 20060830
  Receipt Date: 20060822
  Transmission Date: 20061208
  Serious: Yes (Other)
  Sender: FDA-Public Use
  Company Number: 147190USA

PATIENT
  Age: 46 Year
  Sex: Male

DRUGS (5)
  1. COPAXONE [Suspect]
     Indication: MULTIPLE SCLEROSIS
     Dosage: 20 MILLIGRAM QD SUBCUTANEOUS
     Route: 058
     Dates: start: 20030416
  2. TEGRETOL [Concomitant]
  3. CEPHALEXIN [Concomitant]
  4. CYMBALTA [Concomitant]
  5. MORPHINE [Concomitant]

REACTIONS (3)
  - GANGRENE [None]
  - SCAB [None]
  - SKIN NECROSIS [None]
